FAERS Safety Report 5179475-9 (Version None)
Quarter: 2006Q4

REPORT INFORMATION
  Report Type: 
  Country: None (occurrence: None)
  Receive Date: 20061211
  Receipt Date: 20061128
  Transmission Date: 20070319
  Serious: Yes (Hospitalization)
  Sender: FDA-Public Use
  Company Number: HQWYE658128NOV06

PATIENT
  Age: 75 Year
  Sex: Female

DRUGS (8)
  1. CORDARONE [Suspect]
     Indication: ATRIAL FIBRILLATION
     Dosage: 600 MG 3X PER 1 DAY, ORAL
     Route: 048
     Dates: start: 20061024, end: 20061031
  2. LOSARTAN POTASSIUM AND HYDROCHLOROTHIAZIDE [Suspect]
     Indication: ESSENTIAL HYPERTENSION
     Dosage: 100 MG 1X PER 1 DAY ORAL
     Route: 048
     Dates: start: 20020101, end: 20061031
  3. SINGULAIR [Suspect]
     Indication: ASTHMA
     Dates: end: 20061027
  4. SINGULAIR [Suspect]
     Indication: ASTHMA
     Dates: start: 20061028, end: 20061031
  5. SINTROM [Concomitant]
  6. FOSAMAX [Concomitant]
  7. NEXIUM [Concomitant]
  8. CALCIMAGON (CALCIUM CARBONATE/COLECALCIFEROL) [Concomitant]

REACTIONS (9)
  - CONDITION AGGRAVATED [None]
  - DRUG INTOLERANCE [None]
  - GENERAL PHYSICAL HEALTH DETERIORATION [None]
  - HYPONATRAEMIA [None]
  - HYPOTHYROIDISM [None]
  - INAPPROPRIATE ANTIDIURETIC HORMONE SECRETION [None]
  - NAUSEA [None]
  - RENAL IMPAIRMENT [None]
  - VOMITING [None]
